FAERS Safety Report 20338758 (Version 2)
Quarter: 2022Q1

REPORT INFORMATION
  Report Type: Spontaneous
  Country: US (occurrence: US)
  Receive Date: 20220116
  Receipt Date: 20220204
  Transmission Date: 20220423
  Serious: No
  Sender: FDA-Public Use
  Company Number: US-Blueprint Medicines Corporation-SP-US-2021-002682

PATIENT
  Age: 45 Year
  Sex: Female

DRUGS (1)
  1. AYVAKIT [Suspect]
     Active Substance: AVAPRITINIB
     Indication: Systemic mastocytosis
     Route: 048
     Dates: start: 20211203

REACTIONS (13)
  - Skin lesion [Not Recovered/Not Resolved]
  - Gastrointestinal disorder [Not Recovered/Not Resolved]
  - Nausea [Not Recovered/Not Resolved]
  - Somnolence [Not Recovered/Not Resolved]
  - Pain in extremity [Unknown]
  - Muscle strain [Unknown]
  - Feeling abnormal [Not Recovered/Not Resolved]
  - Aphasia [Not Recovered/Not Resolved]
  - Condition aggravated [Not Recovered/Not Resolved]
  - Urticaria [Not Recovered/Not Resolved]
  - Fatigue [Not Recovered/Not Resolved]
  - Temperature intolerance [Not Recovered/Not Resolved]
  - Exercise tolerance decreased [Not Recovered/Not Resolved]

NARRATIVE: CASE EVENT DATE: 20211203
